FAERS Safety Report 15589560 (Version 2)
Quarter: 2018Q4

REPORT INFORMATION
  Report Type: Spontaneous
  Country: NL (occurrence: NL)
  Receive Date: 20181106
  Receipt Date: 20181115
  Transmission Date: 20190205
  Serious: Yes (Other)
  Sender: FDA-Public Use
  Company Number: NL-ACCORD-091115

PATIENT
  Age: 62 Year
  Sex: Female

DRUGS (1)
  1. METHOTREXATE. [Suspect]
     Active Substance: METHOTREXATE
     Indication: RHEUMATOID ARTHRITIS
     Dosage: 1 KEER PER WEEK 17,5MG?STRENGTH: 2.5 MG??ALSO RECEIVED 15 MG ONCE A WEEK (6 TABLETS)
     Dates: start: 20120417, end: 20120708

REACTIONS (2)
  - Lung disorder [Unknown]
  - Pneumonia [Unknown]

NARRATIVE: CASE EVENT DATE: 20120708
